FAERS Safety Report 22291610 (Version 1)
Quarter: 2023Q2

REPORT INFORMATION
  Report Type: Spontaneous
  Country: ES (occurrence: ES)
  Receive Date: 20230507
  Receipt Date: 20230507
  Transmission Date: 20230722
  Serious: Yes (Other)
  Sender: FDA-Public Use
  Company Number: ES-MYLANLABS-2023M1034112

PATIENT
  Sex: Male

DRUGS (9)
  1. ASPIRIN [Suspect]
     Active Substance: ASPIRIN
     Indication: Product used for unknown indication
     Dosage: UNK, DOSAGE: 0-1-0
     Route: 065
  2. CLOPIDOGREL [Suspect]
     Active Substance: CLOPIDOGREL BISULFATE
     Indication: Product used for unknown indication
     Dosage: UNK, DOSAGE: 1-0-0
     Route: 065
  3. SERTRALINE [Suspect]
     Active Substance: SERTRALINE HYDROCHLORIDE
     Indication: Product used for unknown indication
     Dosage: UNK, DOSAGE: 1.5-0-0
     Route: 065
  4. ATORVASTATIN CALCIUM\EZETIMIBE [Suspect]
     Active Substance: ATORVASTATIN CALCIUM\EZETIMIBE
     Indication: Product used for unknown indication
     Dosage: UNK, DOSAGE: 0-0-1
     Route: 065
  5. PENTOXIFYLLINE [Suspect]
     Active Substance: PENTOXIFYLLINE
     Indication: Product used for unknown indication
     Dosage: UNK, DOSAGE: 1-0-1
     Route: 065
  6. LATANOPROST\TIMOLOL [Suspect]
     Active Substance: LATANOPROST\TIMOLOL
     Indication: Product used for unknown indication
     Dosage: UNK, DOSAGE: 0-0-1, 50 MCG/ML + 5 MG/ML 30
     Route: 065
  7. LANSOPRAZOLE [Suspect]
     Active Substance: LANSOPRAZOLE
     Indication: Product used for unknown indication
     Dosage: UNK, DOSAGE: 1-0-0
     Route: 065
  8. TEVETEN [Suspect]
     Active Substance: EPROSARTAN MESYLATE
     Indication: Product used for unknown indication
     Dosage: UNK, DOSAGE: 0-1-0
     Route: 065
  9. ALPRAZOLAM [Suspect]
     Active Substance: ALPRAZOLAM
     Indication: Product used for unknown indication
     Dosage: UNK, DOSAGE FORM, ONCE, (DOSAGE: 0.5-0-1)
     Route: 065

REACTIONS (4)
  - Dementia [Unknown]
  - Amnesia [Unknown]
  - Haematoma [Recovering/Resolving]
  - Intentional product use issue [Unknown]
